FAERS Safety Report 6819357-7 (Version None)
Quarter: 2010Q3

REPORT INFORMATION
  Report Type: 
  Country: None (occurrence: None)
  Receive Date: 20100707
  Receipt Date: 20100701
  Transmission Date: 20110219
  Serious: Yes (Hospitalization, Disabling, Other)
  Sender: FDA-Public Use
  Company Number: US-BAYER-201017485BCC

PATIENT
  Age: 67 Year
  Sex: Female

DRUGS (7)
  1. ASPIRIN [Suspect]
     Indication: CORONARY ARTERIAL STENT INSERTION
     Route: 048
     Dates: start: 20100420, end: 20100510
  2. PLAVIX [Suspect]
     Indication: CORONARY ARTERIAL STENT INSERTION
     Dosage: UNIT DOSE: 75 MG
     Route: 048
     Dates: start: 20100420
  3. CALCIUM CARBONATE [Concomitant]
     Route: 065
     Dates: end: 20100401
  4. MULTI-VITAMINS [Concomitant]
     Route: 065
     Dates: end: 20100401
  5. VITAMIN D [Concomitant]
     Route: 065
     Dates: end: 20100401
  6. FISH OIL [Concomitant]
     Route: 065
     Dates: end: 20100401
  7. IBUPROFEN [Concomitant]
     Indication: HEADACHE
     Route: 065
     Dates: end: 20100401

REACTIONS (16)
  - ASTHENIA [None]
  - BACK PAIN [None]
  - CONTUSION [None]
  - DIVERTICULITIS [None]
  - DIZZINESS [None]
  - EYE HAEMORRHAGE [None]
  - HAEMATOMA [None]
  - HAEMOGLOBIN DECREASED [None]
  - IMPAIRED WORK ABILITY [None]
  - INTESTINAL HAEMORRHAGE [None]
  - MELAENA [None]
  - MUSCLE SPASMS [None]
  - NAUSEA [None]
  - NECK PAIN [None]
  - PRURITUS [None]
  - THERAPEUTIC RESPONSE INCREASED [None]
